FAERS Safety Report 25734079 (Version 2)
Quarter: 2025Q3

REPORT INFORMATION
  Report Type: Report from Study
  Country: KR (occurrence: KR)
  Receive Date: 20250828
  Receipt Date: 20250912
  Transmission Date: 20251021
  Serious: Yes (Death, Hospitalization, Other)
  Sender: KARYOPHARM THERAPEUTICS
  Company Number: KR-ANTENGENE-20250803302

PATIENT
  Age: 81 Year
  Sex: Male
  Weight: 45.6 kg

DRUGS (29)
  1. SELINEXOR [Suspect]
     Active Substance: SELINEXOR
     Indication: Plasma cell myeloma
     Route: 048
     Dates: start: 20250505, end: 20250512
  2. SELINEXOR [Suspect]
     Active Substance: SELINEXOR
     Route: 048
     Dates: start: 20250526, end: 20250730
  3. GODEX [ADENINE HYDROCHLORIDE;CARNITINE OROTATE;CYANOCOBALAMIN;LIVER;PY [Concomitant]
     Indication: Hepatocellular carcinoma
  4. LASIX [Concomitant]
     Active Substance: FUROSEMIDE
     Indication: Oedema
  5. ALDACTONE [Concomitant]
     Active Substance: SPIRONOLACTONE
     Indication: Oedema
  6. NEWRICA [Concomitant]
     Indication: Neuropathy peripheral
  7. DICAMAX D PLUS [Concomitant]
     Indication: Prophylaxis
  8. ALLEGRA [Concomitant]
     Active Substance: FEXOFENADINE HYDROCHLORIDE
     Indication: Rash
  9. URSODIOL [Concomitant]
     Active Substance: URSODIOL
     Indication: Hepatocellular carcinoma
  10. TAMLOSTAR [Concomitant]
     Indication: Bladder cancer
  11. REBAMIPIDE [Concomitant]
     Active Substance: REBAMIPIDE
     Indication: Prophylaxis
  12. SULFAMETHOXAZOLE\TRIMETHOPRIM [Concomitant]
     Active Substance: SULFAMETHOXAZOLE\TRIMETHOPRIM
     Indication: Prophylaxis
  13. NALOXONE HYDROCHLORIDE\OXYCODONE HYDROCHLORIDE [Concomitant]
     Active Substance: NALOXONE HYDROCHLORIDE\OXYCODONE HYDROCHLORIDE
     Indication: Back pain
  14. ARTEMISIA ARGYI LEAF [Concomitant]
     Active Substance: ARTEMISIA ARGYI LEAF
     Indication: Prophylaxis
  15. ZOYLEX [ACICLOVIR] [Concomitant]
     Indication: Prophylaxis
  16. LANSOPRAZOLE [Concomitant]
     Active Substance: LANSOPRAZOLE
     Indication: Prophylaxis
  17. ONDANT [Concomitant]
     Indication: Prophylaxis
  18. OLANZAPINE [Concomitant]
     Active Substance: OLANZAPINE
     Indication: Prophylaxis
  19. SUPRAX [Concomitant]
     Active Substance: CEFIXIME
     Indication: Prophylaxis
  20. BEARMAC [Concomitant]
  21. EVENITY [Concomitant]
     Active Substance: ROMOSOZUMAB-AQQG
     Indication: Prophylaxis
  22. MEPERIDINE [Concomitant]
     Active Substance: MEPERIDINE
     Indication: Prophylaxis
  23. LIDOCAINE [Concomitant]
     Active Substance: LIDOCAINE
     Indication: Prophylaxis
  24. MAXIGESIC [IBUPROFEN;PARACETAMOL] [Concomitant]
     Indication: Prophylaxis
  25. TROLAC [Concomitant]
     Indication: Prophylaxis
  26. TETAN KIT [Concomitant]
     Indication: Prophylaxis
  27. DARBEPOETIN ALFA [Concomitant]
     Active Substance: DARBEPOETIN ALFA
     Indication: Prophylaxis
  28. DEXAMETHASONE [Concomitant]
     Active Substance: DEXAMETHASONE
     Indication: Plasma cell myeloma
  29. MEGACE F [Concomitant]
     Indication: Prophylaxis

REACTIONS (16)
  - Pneumonia [Fatal]
  - Cerebral infarction [Not Recovered/Not Resolved]
  - Constipation [Recovered/Resolved]
  - Back pain [Recovering/Resolving]
  - Hypoalbuminaemia [Not Recovered/Not Resolved]
  - Gamma-glutamyltransferase increased [Recovered/Resolved]
  - Oedema peripheral [Not Recovered/Not Resolved]
  - Hypocalcaemia [Not Recovered/Not Resolved]
  - Hypertension [Recovered/Resolved]
  - Pain [Not Recovered/Not Resolved]
  - Fatigue [Recovered/Resolved]
  - Pyrexia [Recovered/Resolved]
  - Constipation [Recovered/Resolved]
  - Hypokalaemia [Not Recovered/Not Resolved]
  - Asthenia [Recovering/Resolving]
  - Pyrexia [Not Recovered/Not Resolved]

NARRATIVE: CASE EVENT DATE: 20250501
